FAERS Safety Report 6608342-6 (Version None)
Quarter: 2010Q1

REPORT INFORMATION
  Report Type: 
  Country: None (occurrence: None)
  Receive Date: 20100225
  Receipt Date: 20100225
  Transmission Date: 20100710
  Serious: No
  Sender: FDA-Public Use
  Company Number: None

PATIENT
  Age: 72 Year
  Sex: Male
  Weight: 78 kg

DRUGS (1)
  1. CHANTIX [Suspect]
     Indication: SMOKING CESSATION THERAPY
     Dosage: 1 TAB BID PO
     Route: 048
     Dates: start: 20091124, end: 20100114

REACTIONS (3)
  - ERYTHEMA MULTIFORME [None]
  - PRURITUS [None]
  - URTICARIA [None]
